FAERS Safety Report 7747116-X (Version None)
Quarter: 2011Q3

REPORT INFORMATION
  Report Type: 
  Country: None (occurrence: None)
  Receive Date: 20110913
  Receipt Date: 20110905
  Transmission Date: 20111222
  Serious: Yes (Other)
  Sender: FDA-Public Use
  Company Number: BR-PFIZER INC-2011207130

PATIENT
  Age: 30 Year
  Sex: Female
  Weight: 69 kg

DRUGS (1)
  1. DOSTINEX [Suspect]
     Indication: LACTATION INHIBITION THERAPY
     Dosage: 0.25 MG (HALF TABLET STRENGTH 0.5MG IN THE MORNING AND AT NIGH), 2X/DAY
     Route: 048
     Dates: start: 20110801, end: 20110801

REACTIONS (5)
  - BREAST PAIN [None]
  - PYREXIA [None]
  - GALACTOSTASIS [None]
  - HEADACHE [None]
  - DRUG INEFFECTIVE [None]
